FAERS Safety Report 15856113 (Version 1)
Quarter: 2019Q1

REPORT INFORMATION
  Report Type: Report from Study
  Country: None (occurrence: DE)
  Receive Date: 20190123
  Receipt Date: 20190123
  Transmission Date: 20190417
  Serious: Yes (Hospitalization)
  Sender: FDA-Public Use
  Company Number: DE-ABBVIE-18K-062-2521020-00

PATIENT
  Age: 59 Year
  Sex: Female
  Weight: 58 kg

DRUGS (2)
  1. HUMIRA [Suspect]
     Active Substance: ADALIMUMAB
     Indication: PSORIASIS
     Route: 058
     Dates: start: 20090914
  2. SIMVASTATIN. [Concomitant]
     Active Substance: SIMVASTATIN
     Indication: PRODUCT USED FOR UNKNOWN INDICATION

REACTIONS (13)
  - Pruritus [Unknown]
  - Peripheral arterial occlusive disease [Unknown]
  - Peripheral ischaemia [Unknown]
  - Thrombosis [Unknown]
  - Gangrene [Recovering/Resolving]
  - Bone density decreased [Unknown]
  - Calcinosis [Unknown]
  - Reperfusion injury [Unknown]
  - Peripheral swelling [Unknown]
  - Necrosis [Unknown]
  - Renal cyst [Unknown]
  - Sensory disturbance [Recovered/Resolved]
  - Erythema [Unknown]

NARRATIVE: CASE EVENT DATE: 2018
